FAERS Safety Report 5779977-8 (Version None)
Quarter: 2008Q2

REPORT INFORMATION
  Report Type: 
  Country: None (occurrence: None)
  Receive Date: 20080620
  Receipt Date: 20080611
  Transmission Date: 20081010
  Serious: No
  Sender: FDA-Public Use
  Company Number: TW-JNJFOC-20080603028

PATIENT

DRUGS (2)
  1. RISPERDAL [Suspect]
     Indication: DEMENTIA
     Route: 048
  2. MEMANTINE HCL [Suspect]
     Indication: DEMENTIA

REACTIONS (1)
  - PLATELET COUNT DECREASED [None]
